FAERS Safety Report 21028148 (Version 1)
Quarter: 2022Q2

REPORT INFORMATION
  Report Type: Spontaneous
  Country: US (occurrence: None)
  Receive Date: 20220630
  Receipt Date: 20220630
  Transmission Date: 20220721
  Serious: Yes (Hospitalization)
  Sender: FDA-Public Use
  Company Number: None

PATIENT
  Age: 60 Year
  Sex: Male
  Weight: 83.87 kg

DRUGS (17)
  1. EVEROLIMUS [Suspect]
     Active Substance: EVEROLIMUS
     Indication: Hepatomegaly
     Dosage: FREQUENCY : DAILY;?
     Route: 048
     Dates: start: 20220628, end: 20220628
  2. ALEVE [Concomitant]
     Active Substance: NAPROXEN SODIUM
  3. BENADRYL [Concomitant]
     Active Substance: DIPHENHYDRAMINE HYDROCHLORIDE
  4. NICOTINE [Concomitant]
     Active Substance: NICOTINE
  5. ATROPINE\DIPHENOXYLATE [Concomitant]
     Active Substance: ATROPINE\DIPHENOXYLATE
  6. ESCITALOPRAM [Concomitant]
     Active Substance: ESCITALOPRAM OXALATE
  7. GABAPENTIN [Concomitant]
     Active Substance: GABAPENTIN
  8. HYDROXYZINE [Concomitant]
     Active Substance: HYDROXYZINE HYDROCHLORIDE
  9. LEVETIRACETAM [Concomitant]
     Active Substance: LEVETIRACETAM
  10. MELATONIN [Concomitant]
     Active Substance: MELATONIN
  11. NADOLOL [Concomitant]
     Active Substance: NADOLOL
  12. OXYCODONE [Concomitant]
     Active Substance: OXYCODONE
  13. SANDOSTATIN [Concomitant]
     Active Substance: OCTREOTIDE ACETATE
  14. TRAZODONE [Concomitant]
     Active Substance: TRAZODONE HYDROCHLORIDE
  15. VIAGRA [Concomitant]
     Active Substance: SILDENAFIL CITRATE
  16. XIFAXAN [Concomitant]
     Active Substance: RIFAXIMIN
  17. ZYRTEC [Concomitant]
     Active Substance: CETIRIZINE HYDROCHLORIDE

REACTIONS (4)
  - Fall [None]
  - Head injury [None]
  - Tobacco user [None]
  - Dizziness [None]
